FAERS Safety Report 4315164-8 (Version None)
Quarter: 2004Q1

REPORT INFORMATION
  Report Type: 
  Country: None (occurrence: None)
  Receive Date: 20040310
  Receipt Date: 20040303
  Transmission Date: 20041129
  Serious: Yes (Other)
  Sender: FDA-Public Use
  Company Number: 04-03-0333

PATIENT
  Age: 61 Year
  Sex: Male

DRUGS (4)
  1. QUININE SULPHATE TABLETS [Suspect]
     Indication: MUSCLE CRAMP
     Dosage: 260 MG QD ORAL
     Route: 048
     Dates: start: 20031001, end: 20040101
  2. FLOMAX [Concomitant]
  3. URISTAT [Concomitant]
  4. FISH OIL [Concomitant]

REACTIONS (1)
  - CONVULSION [None]
